FAERS Safety Report 4448852-3 (Version None)
Quarter: 2004Q3

REPORT INFORMATION
  Report Type: 
  Country: None (occurrence: None)
  Receive Date: 20040909
  Receipt Date: 20040902
  Transmission Date: 20050211
  Serious: Yes (Death)
  Sender: FDA-Public Use
  Company Number: TPG2004A00222

PATIENT
  Age: 74 Year
  Sex: Male

DRUGS (6)
  1. ACTOS [Suspect]
     Indication: DIABETES MELLITUS
     Dosage: 30 MG (30 MG, 1 IN 1 D); PER ORAL
     Route: 048
     Dates: start: 20030612, end: 20030927
  2. GLUCOVANCE (GLIBOMET) [Concomitant]
  3. CO-DIOVAN [Concomitant]
  4. ATORVASTATIN CALCIUM [Concomitant]
  5. NORVASC [Concomitant]
  6. ASPIRIN [Concomitant]

REACTIONS (1)
  - DEATH [None]
